FAERS Safety Report 9615039 (Version 1)
Quarter: 2013Q4

REPORT INFORMATION
  Report Type: Spontaneous
  Country: US (occurrence: US)
  Receive Date: 20131011
  Receipt Date: 20131011
  Transmission Date: 20140711
  Serious: No
  Sender: FDA-Public Use
  Company Number: US-PFIZER INC-2013286493

PATIENT
  Age: 58 Year
  Sex: Female

DRUGS (4)
  1. XELJANZ [Suspect]
     Dosage: 5 MG, 2X/DAY
     Route: 048
     Dates: start: 201304
  2. TRAMADOL [Concomitant]
     Dosage: UNK
  3. IBUPROFEN [Concomitant]
     Dosage: UNK
  4. ARAVA [Concomitant]

REACTIONS (2)
  - Swelling [Unknown]
  - Pain [Unknown]
